FAERS Safety Report 7883599-2 (Version None)
Quarter: 2011Q4

REPORT INFORMATION
  Report Type: 
  Country: None (occurrence: None)
  Receive Date: 20111102
  Receipt Date: 20111031
  Transmission Date: 20120403
  Serious: Yes (Hospitalization)
  Sender: FDA-Public Use
  Company Number: CA-BRISTOL-MYERS SQUIBB COMPANY-15890262

PATIENT
  Age: 56 Year
  Sex: Male

DRUGS (4)
  1. IPILIMUMAB [Suspect]
     Indication: MALIGNANT MELANOMA
     Dosage: INT 22JUL11, COURSE 2
     Route: 042
     Dates: start: 20110615
  2. OXYCONTIN [Concomitant]
     Dates: start: 20110101
  3. LIPITOR [Concomitant]
     Dates: start: 20090101
  4. COUMADIN [Concomitant]
     Dates: start: 20110101

REACTIONS (3)
  - VOMITING [None]
  - NAUSEA [None]
  - ADRENAL INSUFFICIENCY [None]
